FAERS Safety Report 4392864-5 (Version None)
Quarter: 2004Q3

REPORT INFORMATION
  Report Type: 
  Country: None (occurrence: None)
  Receive Date: 20040708
  Receipt Date: 20040220
  Transmission Date: 20050211
  Serious: Yes (Death, Other)
  Sender: FDA-Public Use
  Company Number: JP-BRISTOL-MYERS SQUIBB COMPANY-12513610

PATIENT
  Age: 74 Year
  Sex: Female

DRUGS (16)
  1. VEPESID [Suspect]
     Indication: CERVIX CARCINOMA
     Route: 048
     Dates: start: 20031111, end: 20040112
  2. BRIPLATIN [Suspect]
     Indication: CERVIX CARCINOMA RECURRENT
     Route: 042
     Dates: start: 20030707, end: 20031024
  3. MITOMYCIN-C BULK POWDER [Suspect]
     Indication: CERVIX CARCINOMA RECURRENT
     Route: 042
     Dates: start: 20030711, end: 20031024
  4. DEPAS [Concomitant]
     Indication: NEUROSIS
     Route: 048
     Dates: end: 20040122
  5. PEPLEO [Suspect]
     Indication: CERVIX CARCINOMA RECURRENT
     Route: 042
     Dates: start: 20030707, end: 20031024
  6. ONCOVIN [Suspect]
     Indication: CERVIX CARCINOMA RECURRENT
     Route: 042
     Dates: start: 20030711, end: 20031024
  7. RADIOTHERAPY [Concomitant]
     Indication: CERVIX CARCINOMA RECURRENT
     Dosage: LINEAC 50 GY, RALS 30 GY TO THE PELVIC CAVITY
     Dates: start: 20030115, end: 20030126
  8. CEPHARANTHINE [Concomitant]
     Route: 048
     Dates: start: 20031208, end: 20040122
  9. PREDONINE [Concomitant]
     Route: 048
     Dates: start: 20031222, end: 20040122
  10. GRAMALIL [Concomitant]
     Route: 048
     Dates: end: 20040122
  11. SERMION [Concomitant]
     Route: 048
     Dates: end: 20040122
  12. LIPITOR [Concomitant]
     Route: 048
     Dates: end: 20040122
  13. CLEANAL [Concomitant]
     Route: 048
     Dates: start: 20030922, end: 20040122
  14. LOXONIN [Concomitant]
     Route: 048
     Dates: start: 20031024, end: 20040122
  15. PURSENNID [Concomitant]
     Route: 048
     Dates: start: 20031222, end: 20040122
  16. STOGAR [Concomitant]
     Route: 048
     Dates: start: 20031222, end: 20040122

REACTIONS (4)
  - ANAEMIA [None]
  - CERVIX CARCINOMA [None]
  - DISSEMINATED INTRAVASCULAR COAGULATION [None]
  - INTERSTITIAL LUNG DISEASE [None]
